FAERS Safety Report 12243133 (Version 1)
Quarter: 2016Q2

REPORT INFORMATION
  Report Type: Spontaneous
  Country: US (occurrence: US)
  Receive Date: 20160406
  Receipt Date: 20160406
  Transmission Date: 20160815
  Serious: No
  Sender: FDA-Public Use
  Company Number: US-SA-2015SA116538

PATIENT
  Age: 42 Year
  Sex: Male

DRUGS (2)
  1. ALLEGRA-D [Suspect]
     Active Substance: FEXOFENADINE\PSEUDOEPHEDRINE
     Indication: SEASONAL ALLERGY
     Dosage: DOSE AND DAILY DOSE: 180 MG/ 240 MG
     Route: 048
     Dates: start: 201506
  2. ALLEGRA-D [Suspect]
     Active Substance: FEXOFENADINE\PSEUDOEPHEDRINE
     Indication: SEASONAL ALLERGY
     Dosage: DOSE AND DAILY DOSE: 180 MG/ 240 MG
     Route: 048
     Dates: start: 201506

REACTIONS (2)
  - Medication residue present [Unknown]
  - Therapeutic response decreased [Unknown]
